FAERS Safety Report 9155367 (Version 4)
Quarter: 2013Q4

REPORT INFORMATION
  Report Type: Report from Study
  Country: US (occurrence: US)
  Receive Date: 20130311
  Receipt Date: 20131003
  Transmission Date: 20140711
  Serious: Yes (Death, Hospitalization)
  Sender: FDA-Public Use
  Company Number: US-ROCHE-1160191

PATIENT
  Age: 66 Year
  Sex: Female
  Weight: 79.45 kg

DRUGS (10)
  1. TRASTUZUMAB EMTANSINE [Suspect]
     Indication: HER-2 POSITIVE BREAST CANCER
     Dosage: LAST DOSE PRIOR TO SAE ON 13/NOV/2012. LAST DOSE PRIOR TO PNEUMONITIS: 05/FEB/2013. LAST DOSE PRIOR
     Route: 042
     Dates: start: 20121113, end: 20130214
  2. DOCETAXEL [Suspect]
     Indication: HER-2 POSITIVE BREAST CANCER
     Dosage: LAST DOSE PRIOR TO SAE ON 13/NOV/2012. ON 04/DEC/2012 DOSE REDUCED TO 75MG/M2 DUE TO NEUTROPENIC FEV
     Route: 042
     Dates: start: 20121113
  3. DOCETAXEL [Suspect]
     Dosage: ON 04/DEC/2012 DOSE REDUCED TO 75MG/M2 DUE TO NEUTROPENIC FEVER. LAST DOSE PRIOR TO SAE ON 26/DEC/20
     Route: 042
     Dates: start: 20121204, end: 20130214
  4. NEULASTA [Suspect]
     Indication: HER-2 POSITIVE BREAST CANCER
     Route: 065
     Dates: start: 20121114, end: 20130206
  5. GABAPENTIN [Concomitant]
     Route: 048
     Dates: start: 20121204, end: 20130225
  6. TRAMADOL [Concomitant]
     Indication: PAIN
     Route: 048
     Dates: start: 20121204, end: 20130225
  7. HYDROCORTISONE [Concomitant]
     Route: 061
     Dates: start: 20130102, end: 20130211
  8. PROMETHAZINE [Concomitant]
     Route: 065
     Dates: start: 20121112, end: 20130211
  9. CIPRO [Concomitant]
     Route: 065
     Dates: start: 20121119, end: 20121119
  10. DOXYCYCLINE [Concomitant]
     Route: 065
     Dates: start: 20121119, end: 20121121

REACTIONS (6)
  - Respiratory failure [Fatal]
  - Pneumonitis [Fatal]
  - Febrile neutropenia [Recovered/Resolved]
  - Dehydration [Recovered/Resolved]
  - Confusional state [Recovered/Resolved]
  - Viral infection [Recovered/Resolved]
